FAERS Safety Report 13942075 (Version 2)
Quarter: 2017Q4

REPORT INFORMATION
  Report Type: Report from Study
  Country: US (occurrence: US)
  Receive Date: 20170906
  Receipt Date: 20171114
  Transmission Date: 20180320
  Serious: Yes (Death, Hospitalization, Other)
  Sender: FDA-Public Use
  Company Number: US-BAYER-2017-167562

PATIENT
  Age: 84 Year
  Sex: Male

DRUGS (2)
  1. ADEMPAS [Suspect]
     Active Substance: RIOCIGUAT
     Indication: PULMONARY ARTERIAL HYPERTENSION
     Dosage: 2.5 MG, TID
     Route: 048
     Dates: start: 20160929, end: 20171102
  2. ADEMPAS [Suspect]
     Active Substance: RIOCIGUAT
     Indication: PULMONARY ARTERIAL HYPERTENSION
     Dosage: UNK

REACTIONS (9)
  - Pneumonia [None]
  - Cardiac failure congestive [None]
  - Death [Fatal]
  - Septic shock [None]
  - Pulmonary arterial hypertension [None]
  - Chest pain [None]
  - End stage renal disease [None]
  - Dyspnoea [None]
  - Clostridium difficile infection [None]

NARRATIVE: CASE EVENT DATE: 20170823
